FAERS Safety Report 10215256 (Version 1)
Quarter: 2014Q2

REPORT INFORMATION
  Report Type: Spontaneous
  Country: US (occurrence: US)
  Receive Date: 20140603
  Receipt Date: 20140603
  Transmission Date: 20141212
  Serious: No
  Sender: FDA-Public Use
  Company Number: US-GILEAD-2014-0103994

PATIENT
  Age: 87 Year
  Sex: Female

DRUGS (25)
  1. LETAIRIS [Suspect]
     Indication: COR PULMONALE CHRONIC
     Dosage: 10 MG, QD
     Route: 065
     Dates: start: 20130501
  2. PREDNISONE [Concomitant]
     Dosage: INCREASED BY 5 MG QD, QD
  3. IRON [Concomitant]
  4. VITAMIN D NOS [Concomitant]
  5. FENTANYL [Concomitant]
  6. GABAPENTIN [Concomitant]
  7. AMITRIPTYLINE [Concomitant]
  8. PHENERGAN                          /00033001/ [Concomitant]
  9. CALCIUM [Concomitant]
  10. VITAMIN B12 NOS [Concomitant]
  11. KLOR-CON [Concomitant]
  12. LASIX                              /00032601/ [Concomitant]
  13. NEXIUM                             /01479302/ [Concomitant]
  14. AMBIEN [Concomitant]
  15. DIOVAN [Concomitant]
  16. SPIRIVA [Concomitant]
  17. JANUVIA [Concomitant]
  18. LYRICA [Concomitant]
  19. MIRALAX                            /00754501/ [Concomitant]
  20. SYNTHROID [Concomitant]
  21. XOPENEX [Concomitant]
  22. COLACE [Concomitant]
  23. DIGOXIN [Concomitant]
  24. ALPHAGAN P [Concomitant]
  25. ASPIRIN [Concomitant]

REACTIONS (6)
  - Dysphonia [Not Recovered/Not Resolved]
  - Weight decreased [Unknown]
  - Weight gain poor [Not Recovered/Not Resolved]
  - Sinusitis [Not Recovered/Not Resolved]
  - Oedema peripheral [Not Recovered/Not Resolved]
  - Nasal congestion [Not Recovered/Not Resolved]
